FAERS Safety Report 12776967 (Version 1)
Quarter: 2016Q3

REPORT INFORMATION
  Report Type: Spontaneous
  Country: AT (occurrence: AT)
  Receive Date: 20160923
  Receipt Date: 20160923
  Transmission Date: 20161109
  Serious: Yes (Death, Hospitalization, Other)
  Sender: FDA-Public Use
  Company Number: AT-TAKEDA-2016TUS016815

PATIENT
  Age: 65 Year
  Sex: Male

DRUGS (15)
  1. ENTYVIO [Suspect]
     Active Substance: VEDOLIZUMAB
     Indication: COLITIS ULCERATIVE
     Dosage: UNK
     Route: 065
     Dates: start: 20160322
  2. TRAVOGEN CREME [Concomitant]
     Dosage: UNK
  3. JANUMET [Concomitant]
     Active Substance: METFORMIN HYDROCHLORIDE\SITAGLIPTIN PHOSPHATE
     Dosage: UNK UNK, QD
  4. OLEOVIT D3 TROPFEN [Concomitant]
     Dosage: UNK UNK, 1/WEEK
     Route: 048
  5. LASIX [Concomitant]
     Active Substance: FUROSEMIDE
     Indication: OEDEMA PERIPHERAL
     Dosage: 20 MG, BID
     Route: 048
  6. NOVOMIX 70 FLEXPEN [Concomitant]
     Active Substance: INSULIN ASPART
     Dosage: UNK
  7. NEURONTIN KAPSELN [Concomitant]
     Dosage: 600 MG, QD
     Route: 048
  8. PENTASA GRANULAT [Concomitant]
     Dosage: 2 G, QD
     Route: 048
  9. NOVOMIX 30 FLEXPEN [Concomitant]
     Active Substance: INSULIN ASPART
     Dosage: UNK
  10. PRADAXA [Concomitant]
     Active Substance: DABIGATRAN ETEXILATE MESYLATE
     Dosage: 150 MG, BID
  11. KREON                              /00014701/ [Concomitant]
     Active Substance: PANCRELIPASE
     Indication: PANCREATIC ENZYMES
  12. NOMEXOR [Concomitant]
     Active Substance: NEBIVOLOL HYDROCHLORIDE
     Dosage: 5 MG, QD
  13. REPARIL GEL [Concomitant]
     Dosage: UNK
  14. PANTOLOC                           /01263204/ [Concomitant]
     Active Substance: PANTOPRAZOLE SODIUM
     Dosage: 20 MG, UNK
  15. OMNI BIOTIC 6 [Concomitant]
     Indication: NUTRITIONAL SUPPLEMENTATION

REACTIONS (5)
  - Colitis ulcerative [Unknown]
  - Myocardial infarction [Fatal]
  - Dyspnoea [Unknown]
  - Cardiogenic shock [Fatal]
  - Melaena [Unknown]

NARRATIVE: CASE EVENT DATE: 20160807
